FAERS Safety Report 6189712-X (Version None)
Quarter: 2009Q2

REPORT INFORMATION
  Report Type: 
  Country: None (occurrence: None)
  Receive Date: 20090514
  Receipt Date: 20090506
  Transmission Date: 20091009
  Serious: Yes (Hospitalization)
  Sender: FDA-Public Use
  Company Number: MX-ROCHE-631532

PATIENT
  Sex: Female

DRUGS (1)
  1. BONIVA [Suspect]
     Indication: OSTEOPOROSIS POSTMENOPAUSAL
     Dosage: DOSE : 3 MG / 3 ML , FREQUENCY : UNIC DOSE
     Route: 042
     Dates: start: 20090418

REACTIONS (1)
  - RENAL FAILURE ACUTE [None]
